FAERS Safety Report 13444482 (Version 2)
Quarter: 2018Q1

REPORT INFORMATION
  Report Type: Report from Study
  Country: None (occurrence: BR)
  Receive Date: 20170414
  Receipt Date: 20180105
  Transmission Date: 20180508
  Serious: Yes (Other)
  Sender: FDA-Public Use
  Company Number: BR-ABBVIE-17K-020-1940216-00

PATIENT
  Age: 47 Year
  Sex: Female
  Weight: 47 kg

DRUGS (5)
  1. HUMIRA [Suspect]
     Active Substance: ADALIMUMAB
     Route: 058
     Dates: start: 201701
  2. HUMIRA [Suspect]
     Active Substance: ADALIMUMAB
     Indication: CROHN^S DISEASE
     Dosage: WEEK ZERO
     Route: 058
     Dates: start: 20160516, end: 20160516
  3. AZATHIOPRINE. [Concomitant]
     Active Substance: AZATHIOPRINE
     Indication: CROHN^S DISEASE
     Route: 048
     Dates: start: 2014
  4. HUMIRA [Suspect]
     Active Substance: ADALIMUMAB
     Route: 058
     Dates: start: 201606
  5. HUMIRA [Suspect]
     Active Substance: ADALIMUMAB
     Dosage: WEEK ONE
     Route: 058
     Dates: start: 201605, end: 201605

REACTIONS (14)
  - Crohn^s disease [Not Recovered/Not Resolved]
  - Gastrointestinal haemorrhage [Recovered/Resolved]
  - Impaired healing [Unknown]
  - Drug effect incomplete [Recovering/Resolving]
  - Diarrhoea [Recovered/Resolved]
  - Gastrointestinal inflammation [Recovering/Resolving]
  - Gastrointestinal carcinoma [Unknown]
  - Gastrointestinal inflammation [Recovered/Resolved]
  - Gastrointestinal tract adenoma [Not Recovered/Not Resolved]
  - Abdominal pain [Recovered/Resolved]
  - Abdominal distension [Recovered/Resolved]
  - Weight decreased [Not Recovered/Not Resolved]
  - Gastrointestinal dysplasia [Not Recovered/Not Resolved]
  - Rectal neoplasm [Unknown]

NARRATIVE: CASE EVENT DATE: 201701
